FAERS Safety Report 9924415 (Version 1)
Quarter: 2014Q1

REPORT INFORMATION
  Report Type: Spontaneous
  Country: US (occurrence: None)
  Receive Date: 20140224
  Receipt Date: 20140224
  Transmission Date: 20141002
  Serious: Yes (Other)
  Sender: FDA-Public Use
  Company Number: None

PATIENT
  Age: 68 Year
  Sex: Female
  Weight: 81.65 kg

DRUGS (4)
  1. LEVOFLOXACIN [Suspect]
     Indication: BACTERIAL INFECTION
     Dosage: 1 TAB ONCE DAILY
     Route: 048
     Dates: start: 20140115, end: 20140118
  2. LEVOFLOXACIN [Suspect]
     Indication: TONSILLITIS
     Dosage: 1 TAB ONCE DAILY
     Route: 048
     Dates: start: 20140115, end: 20140118
  3. LEVOFLOXACIN [Suspect]
     Indication: SINUSITIS
     Dosage: 1 TAB ONCE DAILY
     Route: 048
     Dates: start: 20140115, end: 20140118
  4. LEVOFLOXACIN [Suspect]
     Indication: RESPIRATORY TRACT INFECTION
     Dosage: 1 TAB ONCE DAILY
     Route: 048
     Dates: start: 20140115, end: 20140118

REACTIONS (7)
  - Toxicity to various agents [None]
  - Tendon rupture [None]
  - Abasia [None]
  - Mental impairment [None]
  - Aphagia [None]
  - Insomnia [None]
  - Loss of employment [None]
